FAERS Safety Report 7359275-1 (Version None)
Quarter: 2011Q1

REPORT INFORMATION
  Report Type: 
  Country: None (occurrence: None)
  Receive Date: 20110317
  Receipt Date: 20091029
  Transmission Date: 20110831
  Serious: No
  Sender: FDA-Public Use
  Company Number: US-PFIZER INC-2009270333

PATIENT
  Sex: Male
  Weight: 86.168 kg

DRUGS (12)
  1. ACTOS [Concomitant]
     Dosage: UNK
  2. NORVASC [Suspect]
     Indication: HYPERTENSION
     Dosage: 10 MG, 1X/DAY
  3. COREG [Concomitant]
     Dosage: UNK
  4. ALBUTEROL [Concomitant]
     Dosage: UNK
  5. DIOVAN [Concomitant]
     Dosage: UNK
  6. LASIX [Concomitant]
     Dosage: UNK
  7. PRILOSEC [Concomitant]
     Dosage: UNK
  8. LIPITOR [Concomitant]
     Dosage: UNK
  9. PULMICORT [Concomitant]
     Dosage: UNK
  10. AMLODIPINE BESYLATE [Suspect]
     Indication: HYPERTENSION
     Dosage: 10 MG, 1X/DAY
  11. BACLOFEN [Concomitant]
     Dosage: UNK
  12. ALTACE [Concomitant]
     Dosage: UNK

REACTIONS (2)
  - MUSCLE TIGHTNESS [None]
  - BLOOD PRESSURE INADEQUATELY CONTROLLED [None]
